FAERS Safety Report 6432527-5 (Version None)
Quarter: 2009Q4

REPORT INFORMATION
  Report Type: 
  Country: None (occurrence: None)
  Receive Date: 20091109
  Receipt Date: 20091026
  Transmission Date: 20100525
  Serious: Yes (Death, Hospitalization)
  Sender: FDA-Public Use
  Company Number: GB-MYLANLABS-2009S1018591

PATIENT
  Age: 50 Year
  Sex: Male

DRUGS (2)
  1. BENDROFLUMETHIAZIDE [Suspect]
     Indication: DRUG USE FOR UNKNOWN INDICATION
  2. CLOMIPRAMINE [Suspect]
     Indication: DRUG USE FOR UNKNOWN INDICATION

REACTIONS (2)
  - HYPONATRAEMIA [None]
  - OSMOTIC DEMYELINATION SYNDROME [None]
